FAERS Safety Report 19706219 (Version 1)
Quarter: 2021Q3

REPORT INFORMATION
  Report Type: Spontaneous
  Country: US (occurrence: US)
  Receive Date: 20210817
  Receipt Date: 20210817
  Transmission Date: 20211014
  Serious: Yes (Other)
  Sender: FDA-Public Use
  Company Number: US-LUPIN PHARMACEUTICALS INC.-2021-14746

PATIENT
  Age: 73 Year
  Sex: Female

DRUGS (3)
  1. CEFUROXIME. [Suspect]
     Active Substance: CEFUROXIME
     Indication: SKIN TEST
     Dosage: 10 MILLIGRAM PER MILLILITRE
     Route: 065
  2. IMIPENEM [Suspect]
     Active Substance: IMIPENEM
     Indication: SKIN TEST
     Dosage: 0.5 MILLIGRAM PER MILLILITRE
     Route: 065
  3. CEFOXITIN [Suspect]
     Active Substance: CEFOXITIN SODIUM
     Indication: SKIN TEST
     Dosage: 1 MILLIGRAM PER MILLILITRE
     Route: 065

REACTIONS (1)
  - Type IV hypersensitivity reaction [Unknown]
